FAERS Safety Report 6634815-6 (Version None)
Quarter: 2010Q1

REPORT INFORMATION
  Report Type: 
  Country: None (occurrence: None)
  Receive Date: 20100315
  Receipt Date: 20100305
  Transmission Date: 20100710
  Serious: Yes (Hospitalization)
  Sender: FDA-Public Use
  Company Number: FR-PFIZER INC-2010028524

PATIENT
  Age: 61 Year
  Sex: Male

DRUGS (11)
  1. AMLOR [Suspect]
     Dosage: 10 MG, UNK
  2. PRAZOSIN HCL [Interacting]
     Route: 048
  3. TEMERIT [Interacting]
     Dosage: 5 MG, UNK
  4. TRIATEC [Interacting]
     Dosage: 10 MG, UNK
  5. ESIDRIX [Interacting]
     Dosage: 25 MG, UNK
  6. NEXIUM [Concomitant]
     Dosage: 20 MG, UNK
  7. INSULIN [Concomitant]
  8. TEGRETOL [Concomitant]
     Dosage: 200 MG, UNK
  9. KARDEGIC [Concomitant]
     Dosage: 75 MG, UNK
  10. CRESTOR [Concomitant]
     Dosage: 10 MG, UNK
  11. GLUCOPHAGE [Concomitant]
     Dosage: 500 MG, UNK

REACTIONS (3)
  - LOSS OF CONSCIOUSNESS [None]
  - MALAISE [None]
  - ORTHOSTATIC HYPOTENSION [None]
